FAERS Safety Report 5200949-6 (Version None)
Quarter: 2007Q1

REPORT INFORMATION
  Report Type: 
  Country: None (occurrence: None)
  Receive Date: 20070103
  Receipt Date: 20061221
  Transmission Date: 20070707
  Serious: Yes (Other)
  Sender: FDA-Public Use
  Company Number: 2006SP008827

PATIENT
  Age: 4 Year
  Sex: Male

DRUGS (2)
  1. DESLORATADINE [Suspect]
     Indication: URTICARIA
     Dates: start: 20061220
  2. SOLUPRED [Concomitant]

REACTIONS (2)
  - ANGIOEDEMA [None]
  - RESPIRATORY DISTRESS [None]
